FAERS Safety Report 6361408-0 (Version None)
Quarter: 2009Q3

REPORT INFORMATION
  Report Type: 
  Country: None (occurrence: None)
  Receive Date: 20090918
  Receipt Date: 20090907
  Transmission Date: 20100115
  Serious: Yes (Hospitalization)
  Sender: FDA-Public Use
  Company Number: SE-PFIZER INC-2009177214

PATIENT
  Age: 71 Year

DRUGS (10)
  1. BLINDED *NO SUBJECT DRUG [Suspect]
     Indication: PROSTATE CANCER
     Dosage: EVERY DAY
     Route: 048
     Dates: start: 20090205
  2. BLINDED *PLACEBO [Suspect]
     Indication: PROSTATE CANCER
     Dosage: EVERY DAY
     Route: 048
     Dates: start: 20090205
  3. BLINDED SUNITINIB MALATE [Suspect]
     Indication: PROSTATE CANCER
     Dosage: EVERY DAY
     Route: 048
     Dates: start: 20090205
  4. PREDNISOLONE AND PREDNISOLONE STEAGLATE [Suspect]
     Indication: PROSTATE CANCER
     Dosage: 5 MG, 2X/DAY
     Route: 048
     Dates: start: 20090205
  5. PARACETAMOL [Concomitant]
     Indication: PAIN
     Dosage: 1000 MG, 1X/DAY
     Route: 048
     Dates: start: 20080101
  6. GLIBENCLAMIDE [Concomitant]
     Indication: DIABETES MELLITUS
     Dosage: 3.5 MG, 2X/DAY
     Route: 048
     Dates: start: 19940101
  7. ALFUZOSIN [Concomitant]
     Indication: BENIGN PROSTATIC HYPERPLASIA
     Dosage: 10 MG, 1X/DAY
     Route: 048
  8. SIMVASTATIN [Concomitant]
     Dosage: 40 MG, 1X/DAY
     Route: 048
  9. LOPERAMIDE [Concomitant]
     Indication: DIARRHOEA
     Dosage: 2 MG, AS NEEDED
     Route: 048
     Dates: start: 20080101
  10. METOCLOPRAMIDE [Concomitant]
     Indication: NAUSEA
     Dosage: 10 MG, AS NEEDED
     Route: 048
     Dates: start: 20080101

REACTIONS (2)
  - NAUSEA [None]
  - VOMITING [None]
